FAERS Safety Report 9190346 (Version 1)
Quarter: 2013Q1

REPORT INFORMATION
  Report Type: Spontaneous
  Country: US (occurrence: US)
  Receive Date: 20130326
  Receipt Date: 20130326
  Transmission Date: 20140127
  Serious: No
  Sender: FDA-Public Use
  Company Number: US-PFIZER INC-2013096328

PATIENT
  Age: 48 Year
  Sex: Female
  Weight: 104.31 kg

DRUGS (3)
  1. NEURONTIN [Suspect]
     Indication: NERVE INJURY
     Dosage: 900 MG (3 TABLETS OF 300MG), 2X/DAY
     Route: 048
     Dates: end: 20130320
  2. DIFLUCAN [Concomitant]
     Dosage: UNK
  3. LIPITOR [Concomitant]
     Dosage: UNK

REACTIONS (1)
  - Pain in extremity [Unknown]
